FAERS Safety Report 25571233 (Version 1)
Quarter: 2025Q3

REPORT INFORMATION
  Report Type: Spontaneous
  Country: US (occurrence: US)
  Receive Date: 20250717
  Receipt Date: 20250717
  Transmission Date: 20251021
  Serious: No
  Sender: ROCHE
  Company Number: US-ROCHE-10000336409

PATIENT

DRUGS (1)
  1. NUTROPIN [Suspect]
     Active Substance: SOMATROPIN
     Indication: Product used for unknown indication
     Route: 058

REACTIONS (2)
  - Intercepted product storage error [Unknown]
  - No adverse event [Unknown]

NARRATIVE: CASE EVENT DATE: 20250707
